FAERS Safety Report 9857290 (Version 1)
Quarter: 2014Q1

REPORT INFORMATION
  Report Type: Spontaneous
  Country: DE (occurrence: DE)
  Receive Date: 20140130
  Receipt Date: 20140130
  Transmission Date: 20141002
  Serious: Yes (Other)
  Sender: FDA-Public Use
  Company Number: GXKR2014DE000673

PATIENT
  Sex: 0

DRUGS (3)
  1. DOCETAXEL [Suspect]
     Indication: BREAST CANCER
     Dosage: MATERNAL DOSE: 6 CYCLES: 2.9., 22.9., 13.10., 3.11., 24.11., 15.12.2009
     Route: 064
     Dates: start: 20090902, end: 20091215
  2. CARBOPLATIN [Suspect]
     Dosage: MATERNAL DOSE: 6 CYCLES CHEMO: 2.9., 22.9., 13.10., 3.11., 24.11., 15.12.2009
     Route: 064
     Dates: start: 20090902, end: 20091215
  3. HERCEPTIN [Suspect]
     Indication: BREAST CANCER
     Dosage: MATERNAL DOSE: 2 CYCLES RECEIVED ON 02.09.09 AND 22.09.09
     Route: 064
     Dates: start: 20090902, end: 20090922

REACTIONS (6)
  - Oligohydramnios [Recovered/Resolved]
  - Atrial septal defect [Unknown]
  - Pulmonary artery stenosis congenital [Unknown]
  - Thrombocytopenia neonatal [Recovered/Resolved]
  - Foetal growth restriction [Unknown]
  - Patent ductus arteriosus [Recovered/Resolved]
